FAERS Safety Report 7107876-8 (Version None)
Quarter: 2010Q4

REPORT INFORMATION
  Report Type: 
  Country: None (occurrence: None)
  Receive Date: 20101117
  Receipt Date: 20101108
  Transmission Date: 20110411
  Serious: Yes (Other)
  Sender: FDA-Public Use
  Company Number: TH-BAYER-201045965GPV

PATIENT
  Age: 36 Year
  Sex: Female
  Weight: 54 kg

DRUGS (1)
  1. YASMIN [Suspect]
     Indication: HORMONE LEVEL ABNORMAL
     Route: 048
     Dates: start: 20101031, end: 20101104

REACTIONS (2)
  - MENORRHAGIA [None]
  - SYNCOPE [None]
